FAERS Safety Report 19244735 (Version 1)
Quarter: 2021Q2

REPORT INFORMATION
  Report Type: Report from Study
  Country: US (occurrence: US)
  Receive Date: 20210511
  Receipt Date: 20210511
  Transmission Date: 20210717
  Serious: No
  Sender: FDA-Public Use
  Company Number: US-IPSEN BIOPHARMACEUTICALS, INC.-2021-11741

PATIENT
  Age: 62 Year
  Sex: Male

DRUGS (2)
  1. DYSPORT [Suspect]
     Active Substance: ABOBOTULINUMTOXINA
     Indication: OFF LABEL USE
  2. DYSPORT [Suspect]
     Active Substance: ABOBOTULINUMTOXINA
     Indication: MUSCLE SPASTICITY
     Dosage: DOSE NOT REPORTED
     Route: 065
     Dates: start: 20210505, end: 20210505

REACTIONS (2)
  - Lip swelling [Unknown]
  - Off label use [Unknown]

NARRATIVE: CASE EVENT DATE: 20210505
